FAERS Safety Report 16494204 (Version 1)
Quarter: 2019Q2

REPORT INFORMATION
  Report Type: Report from Study
  Country: CN (occurrence: CN)
  Receive Date: 20190628
  Receipt Date: 20190628
  Transmission Date: 20190711
  Serious: Yes (Hospitalization)
  Sender: FDA-Public Use
  Company Number: CN-ROCHE-2342967

PATIENT
  Age: 64 Year
  Sex: Male
  Weight: 68 kg

DRUGS (20)
  1. TYLENOL [Concomitant]
     Active Substance: ACETAMINOPHEN
     Indication: CEREBROVASCULAR ACCIDENT
     Route: 065
     Dates: start: 20190523, end: 20190524
  2. BARACLUDE [Concomitant]
     Active Substance: ENTECAVIR
     Indication: HEPATITIS B
     Route: 065
     Dates: start: 201510
  3. LOVENOX [Concomitant]
     Active Substance: ENOXAPARIN SODIUM
     Indication: CEREBROVASCULAR ACCIDENT
     Route: 065
     Dates: start: 20190523, end: 20190523
  4. CARAFATE [Concomitant]
     Active Substance: SUCRALFATE
     Dosage: 1 TABLET
     Route: 048
     Dates: start: 20190606
  5. PANTOPRAZOLE [Concomitant]
     Active Substance: PANTOPRAZOLE
     Dosage: 1 TABLET, 2 TIMES A DAY FOR 2 MONTHS THEN 1 TABLET, DAILY
     Route: 065
     Dates: start: 20190606
  6. EUTHYROX [Concomitant]
     Active Substance: LEVOTHYROXINE SODIUM
     Indication: HYPOTHYROIDISM
     Route: 065
     Dates: start: 201802
  7. PLAVIX [Concomitant]
     Active Substance: CLOPIDOGREL BISULFATE
     Indication: CEREBROVASCULAR ACCIDENT
     Dosage: 1 TABLET
     Route: 048
     Dates: start: 20190523
  8. OLMESARTAN MEDOXOMIL. [Concomitant]
     Active Substance: OLMESARTAN MEDOXOMIL
     Route: 048
  9. LEVOTHYROXINE SODIUM. [Concomitant]
     Active Substance: LEVOTHYROXINE SODIUM
     Route: 048
  10. ATEZOLIZUMAB. [Suspect]
     Active Substance: ATEZOLIZUMAB
     Indication: HEPATOCELLULAR CARCINOMA
     Dosage: DATE OF MOST RECENT DOSE OF ATEZOLIZUMAB PRIOR TO SAE (UPPER GASTROINTESTINAL BLEED) ONSET: 09/MAY/2
     Route: 042
     Dates: start: 20181012
  11. INDERAL [Concomitant]
     Active Substance: PROPRANOLOL HYDROCHLORIDE
     Dosage: 1 TABLET
     Route: 048
     Dates: start: 20190607
  12. ASPIRIN 81 [Concomitant]
     Active Substance: ASPIRIN
     Indication: CEREBROVASCULAR ACCIDENT
     Dosage: 1 TABLET
     Route: 048
     Dates: start: 20190524
  13. LIPITOR [Concomitant]
     Active Substance: ATORVASTATIN CALCIUM
     Indication: CEREBROVASCULAR ACCIDENT
     Dosage: 1 TABLET
     Route: 048
     Dates: start: 20190523
  14. ACETAMINOPHEN. [Concomitant]
     Active Substance: ACETAMINOPHEN
     Route: 048
     Dates: start: 20190523, end: 20190524
  15. BEVACIZUMAB. [Suspect]
     Active Substance: BEVACIZUMAB
     Indication: HEPATOCELLULAR CARCINOMA
     Dosage: DATE OF MOST RECENT DOSE OF BEVACIZUMAB PRIOR TO SAE (UPPER GASTROINTESTINAL BLEED) ONSET: 09/MAY/20
     Route: 042
     Dates: start: 20181012
  16. DOCUSATE [Concomitant]
     Active Substance: DOCUSATE
     Indication: CEREBROVASCULAR ACCIDENT
     Route: 065
     Dates: start: 20190523, end: 20190524
  17. ENTECAVIR. [Concomitant]
     Active Substance: ENTECAVIR
     Route: 048
  18. NORMAL SALINE [Concomitant]
     Active Substance: SODIUM CHLORIDE
     Route: 065
  19. COLACE [Concomitant]
     Active Substance: DOCUSATE SODIUM
     Indication: CEREBROVASCULAR ACCIDENT
     Route: 065
     Dates: start: 20190523, end: 20190524
  20. SENOKOT [Concomitant]
     Active Substance: SENNOSIDES
     Indication: CEREBROVASCULAR ACCIDENT
     Route: 065
     Dates: start: 20190523, end: 20190523

REACTIONS (1)
  - Upper gastrointestinal haemorrhage [Recovered/Resolved]

NARRATIVE: CASE EVENT DATE: 20190531
